FAERS Safety Report 6303183-1 (Version None)
Quarter: 2009Q3

REPORT INFORMATION
  Report Type: 
  Country: None (occurrence: None)
  Receive Date: 20090810
  Receipt Date: 20090605
  Transmission Date: 20100115
  Serious: No
  Sender: FDA-Public Use
  Company Number: A0789104A

PATIENT
  Age: 67 Year
  Sex: Female

DRUGS (1)
  1. PAXIL CR [Suspect]
     Indication: DEPRESSION
     Route: 048
     Dates: end: 20090501

REACTIONS (1)
  - DRUG INEFFECTIVE [None]
